FAERS Safety Report 10628843 (Version 1)
Quarter: 2014Q4

REPORT INFORMATION
  Report Type: Spontaneous
  Country: US (occurrence: US)
  Receive Date: 20141205
  Receipt Date: 20141205
  Transmission Date: 20150529
  Serious: No
  Sender: FDA-Public Use
  Company Number: US-BRISTOL-MYERS SQUIBB COMPANY-21498753

PATIENT
  Age: 76 Year
  Sex: Male
  Weight: 74.15 kg

DRUGS (3)
  1. COUMADIN [Suspect]
     Active Substance: WARFARIN SODIUM
     Indication: CEREBROVASCULAR ACCIDENT PROPHYLAXIS
  2. CEPHALEXIN. [Concomitant]
     Active Substance: CEPHALEXIN
  3. ELIQUIS [Suspect]
     Active Substance: APIXABAN

REACTIONS (2)
  - Drug dose omission [Recovered/Resolved]
  - Wrong technique in drug usage process [Recovered/Resolved]
